FAERS Safety Report 9508940 (Version 1)
Quarter: 2013Q3

REPORT INFORMATION
  Report Type: Spontaneous
  Country: US (occurrence: US)
  Receive Date: 20130909
  Receipt Date: 20130909
  Transmission Date: 20140515
  Serious: No
  Sender: FDA-Public Use
  Company Number: US-BRISTOL-MYERS SQUIBB COMPANY-19083211

PATIENT
  Age: 12 Year
  Sex: Female
  Weight: 40.82 kg

DRUGS (1)
  1. ABILIFY [Suspect]
     Indication: BIPOLAR DISORDER
     Dosage: 20MG TO 10MG FOR 7 DAYS,FOLLOWED BY 5 MGFOR 7 DAYS.?LAST DOSAGE OF 5MG

REACTIONS (1)
  - Hiccups [Unknown]
